FAERS Safety Report 18806494 (Version 1)
Quarter: 2021Q1

REPORT INFORMATION
  Report Type: Report from Study
  Country: PA (occurrence: PA)
  Receive Date: 20210128
  Receipt Date: 20210128
  Transmission Date: 20210419
  Serious: Yes (Death, Hospitalization)
  Sender: FDA-Public Use
  Company Number: PA-INCYTE CORPORATION-2020IN005978

PATIENT

DRUGS (3)
  1. JAKAVI [Suspect]
     Active Substance: RUXOLITINIB
     Dosage: 4 DF, Q12H (SINCE ONE YEAR AND A HALF APPROXIMATELY)
     Route: 065
  2. JAKAVI [Suspect]
     Active Substance: RUXOLITINIB
     Indication: PRIMARY MYELOFIBROSIS
     Dosage: 5 MG
     Route: 065
     Dates: start: 201902
  3. TYLENOL [Suspect]
     Active Substance: ACETAMINOPHEN
     Indication: ARTHRALGIA
     Dosage: UNK
     Route: 065

REACTIONS (5)
  - Cold sweat [Unknown]
  - Respiratory failure [Fatal]
  - Haemoglobin decreased [Unknown]
  - Arthralgia [Unknown]
  - Pneumonia [Fatal]
